FAERS Safety Report 5023709-8 (Version None)
Quarter: 2006Q2

REPORT INFORMATION
  Report Type: 
  Country: None (occurrence: None)
  Receive Date: 20060612
  Receipt Date: 20060603
  Transmission Date: 20061013
  Serious: Yes (Other)
  Sender: FDA-Public Use
  Company Number: 2006UW10757

PATIENT
  Sex: Female

DRUGS (1)
  1. SEROQUEL [Suspect]
     Indication: PARANOIA
     Route: 048

REACTIONS (6)
  - BILE DUCT OBSTRUCTION [None]
  - JAUNDICE [None]
  - PANCREATIC CARCINOMA METASTATIC [None]
  - PARANOIA [None]
  - THERAPEUTIC RESPONSE UNEXPECTED [None]
  - VASCULAR DEMENTIA [None]
